FAERS Safety Report 7409925-6 (Version None)
Quarter: 2011Q2

REPORT INFORMATION
  Report Type: 
  Country: None (occurrence: None)
  Receive Date: 20110412
  Receipt Date: 20110331
  Transmission Date: 20111010
  Serious: Yes (Other)
  Sender: FDA-Public Use
  Company Number: PHHY2011FR27420

PATIENT
  Age: 71 Year
  Sex: Female
  Weight: 53 kg

DRUGS (2)
  1. ADVIL LIQUI-GELS [Suspect]
     Indication: HEADACHE
  2. ACLASTA [Suspect]
     Indication: OSTEOPOROSIS POSTMENOPAUSAL
     Dosage: 5 MG,
     Route: 042
     Dates: start: 20100101

REACTIONS (8)
  - RENAL ARTERY STENOSIS [None]
  - CREATININE RENAL CLEARANCE DECREASED [None]
  - OCULAR HYPERTENSION [None]
  - OCULAR DISCOMFORT [None]
  - ARTERIOSCLEROSIS [None]
  - BLOOD CREATININE INCREASED [None]
  - RETINOPATHY HYPERTENSIVE [None]
  - RENAL FAILURE [None]
